FAERS Safety Report 17197737 (Version 1)
Quarter: 2019Q4

REPORT INFORMATION
  Report Type: Spontaneous
  Country: US (occurrence: US)
  Receive Date: 20191224
  Receipt Date: 20191224
  Transmission Date: 20200122
  Serious: Yes (Other)
  Sender: FDA-Public Use
  Company Number: US-GILEAD-2019-0444390

PATIENT
  Sex: Female

DRUGS (4)
  1. ATENOLOL. [Concomitant]
     Active Substance: ATENOLOL
     Dosage: UNKNOWN
  2. VEMLIDY [Suspect]
     Active Substance: TENOFOVIR ALAFENAMIDE FUMARATE
     Indication: CHRONIC HEPATITIS B
     Dosage: 25 MG, QD WITH BREAKFAST
     Route: 048
     Dates: start: 201911
  3. TAPAZOLE [Concomitant]
     Active Substance: METHIMAZOLE
     Dosage: UNKNOWN
  4. MONTELUKAST SODIUM. [Concomitant]
     Active Substance: MONTELUKAST SODIUM
     Dosage: UNKNOWN

REACTIONS (2)
  - Cholecystectomy [Unknown]
  - Abdominal pain upper [Not Recovered/Not Resolved]
